APPROVED DRUG PRODUCT: AMERSCAN MDP KIT
Active Ingredient: TECHNETIUM TC-99M MEDRONATE KIT
Strength: N/A
Dosage Form/Route: INJECTABLE;INJECTION
Application: N018335 | Product #001
Applicant: GE HEALTHCARE
Approved: Aug 5, 1982 | RLD: No | RS: No | Type: DISCN